FAERS Safety Report 18861803 (Version 3)
Quarter: 2021Q1

REPORT INFORMATION
  Report Type: Report from Study
  Country: MX (occurrence: MX)
  Receive Date: 20210208
  Receipt Date: 20210318
  Transmission Date: 20210420
  Serious: Yes (Hospitalization, Other)
  Sender: FDA-Public Use
  Company Number: NVSC2019MX034009

PATIENT
  Age: 68 Year
  Sex: Female
  Weight: 70 kg

DRUGS (19)
  1. INSULIN [Concomitant]
     Active Substance: INSULIN NOS
     Indication: DIABETES MELLITUS
     Dosage: 40 DF (100 UNITS), BID
     Route: 058
  2. BEDOYECTA [Concomitant]
     Indication: MENOPAUSE
     Dosage: 1 UNK, PRN (STARTED APPROXIMATELY 10 YEARS AGO)
     Route: 030
  3. METFORMIN [Concomitant]
     Active Substance: METFORMIN HYDROCHLORIDE
     Indication: DIABETES MELLITUS
     Dosage: 850 MG, BID (17 YEARS AGO)
     Route: 048
  4. ENTRESTO [Suspect]
     Active Substance: SACUBITRIL\VALSARTAN
     Indication: CONGESTIVE CARDIOMYOPATHY
     Dosage: 1 DF (100 MG), BID (IN THE MORNING AND AT NIGHT)
     Route: 048
     Dates: start: 201612
  5. ATORVASTATINA [Concomitant]
     Active Substance: ATORVASTATIN
     Indication: BLOOD CHOLESTEROL ABNORMAL
     Dosage: 1 DF, BID
     Route: 048
  6. ESPIRONOLACTONA [Concomitant]
     Active Substance: SPIRONOLACTONE
     Indication: FLUID RETENTION
     Dosage: 1 DF, QD
     Route: 048
     Dates: start: 2006
  7. OMEPRAZOLE. [Concomitant]
     Active Substance: OMEPRAZOLE
     Indication: GASTRIC DISORDER
     Dosage: 20 MG, BID (15 YEARS AGO)
     Route: 048
  8. BISOPROLOL [Concomitant]
     Active Substance: BISOPROLOL
     Indication: CARDIAC DISORDER
     Dosage: UNK
     Route: 048
     Dates: start: 201201
  9. INSULIN [Concomitant]
     Active Substance: INSULIN NOS
     Dosage: 75 U, QD
     Route: 058
     Dates: start: 2017
  10. SPIRONOLACTONE. [Concomitant]
     Active Substance: SPIRONOLACTONE
     Indication: ANTICOAGULANT THERAPY
     Dosage: 25 MG, QD (10 YEARS AGO)
     Route: 048
  11. ENTRESTO [Suspect]
     Active Substance: SACUBITRIL\VALSARTAN
     Indication: CARDIAC DISORDER
     Dosage: 2 DF(100MG), QD
     Route: 048
     Dates: start: 201612
  12. ENTRESTO [Suspect]
     Active Substance: SACUBITRIL\VALSARTAN
     Dosage: 1 DF, Q12H (100 MG)
     Route: 048
     Dates: start: 201712
  13. ACENOCOUMAROL [Suspect]
     Active Substance: ACENOCOUMAROL
     Indication: COAGULOPATHY
     Dosage: UNK UNK, QD (HALF TABLET ON MONDAY,WED, THURS, FRI, 1 TAB AND HALF ON TUESDAY AND 1 TABLET ON SATURD
     Route: 048
  14. ACENOCOUMAROL [Suspect]
     Active Substance: ACENOCOUMAROL
     Indication: CARDIAC DISORDER
  15. CONCOR [Concomitant]
     Active Substance: BISOPROLOL FUMARATE
     Indication: CARDIAC DISORDER
     Dosage: 0.5 DF (HALF OF 2.5 MG), QD
     Route: 065
     Dates: start: 201211
  16. CHLORINE [Concomitant]
     Active Substance: CHLORINE
     Indication: COVID-19 PROPHYLAXIS
     Dosage: UNK UNK, UNKNOWN
     Route: 065
  17. INSULIN [Concomitant]
     Active Substance: INSULIN NOS
     Dosage: 40 IU, BID (2 YEARS AGO)
     Route: 058
  18. DIGOXINA [Concomitant]
     Active Substance: DIGOXIN
     Indication: CARDIAC DISORDER
     Dosage: 2.5 MG (FROM MONDAY TO FRIDAY, 17 YEARS AGO)
     Route: 048
     Dates: start: 2006
  19. ENTRESTO [Suspect]
     Active Substance: SACUBITRIL\VALSARTAN
     Dosage: 100 MG, BID
     Route: 048
     Dates: start: 201612

REACTIONS (28)
  - Alopecia [Not Recovered/Not Resolved]
  - Contusion [Unknown]
  - Hypoaesthesia [Unknown]
  - Intestinal haemorrhage [Recovered/Resolved]
  - Anaemia [Unknown]
  - Blood glucose decreased [Recovered/Resolved]
  - Diarrhoea haemorrhagic [Recovered/Resolved]
  - Bone pain [Recovering/Resolving]
  - Limb mass [Recovering/Resolving]
  - Burning sensation [Unknown]
  - Product use in unapproved indication [Unknown]
  - Inappropriate schedule of product administration [Unknown]
  - Angina unstable [Unknown]
  - Haemoglobin decreased [Recovered/Resolved]
  - Influenza [Recovered/Resolved]
  - Fatigue [Not Recovered/Not Resolved]
  - Abdominal discomfort [Recovering/Resolving]
  - Unevaluable event [Recovered/Resolved]
  - Fatigue [Recovered/Resolved]
  - Agitation [Not Recovered/Not Resolved]
  - Poisoning [Unknown]
  - Visual impairment [Unknown]
  - Weight increased [Not Recovered/Not Resolved]
  - Cough [Not Recovered/Not Resolved]
  - Haemoglobin decreased [Recovering/Resolving]
  - Pain in extremity [Recovering/Resolving]
  - Dysstasia [Recovered/Resolved]
  - Malaise [Recovering/Resolving]

NARRATIVE: CASE EVENT DATE: 2017
